FAERS Safety Report 7394252-6 (Version None)
Quarter: 2011Q2

REPORT INFORMATION
  Report Type: 
  Country: None (occurrence: None)
  Receive Date: 20110405
  Receipt Date: 20110324
  Transmission Date: 20111010
  Serious: Yes (Hospitalization)
  Sender: FDA-Public Use
  Company Number: JP-BAYER-2011-005655

PATIENT
  Sex: Female
  Weight: 53 kg

DRUGS (5)
  1. MAGLAX [Concomitant]
     Indication: CONSTIPATION
     Dosage: DAILY DOSE 660 MG
     Route: 048
     Dates: start: 20080101
  2. JUVELA N [Concomitant]
     Dosage: DAILY DOSE 1000 MG
     Route: 048
     Dates: start: 20100101
  3. NEXAVAR [Suspect]
     Indication: RENAL CELL CARCINOMA
     Dosage: DAILY DOSE 800 MG
     Route: 048
     Dates: start: 20101123, end: 20101228
  4. SUTENT [Concomitant]
     Dosage: DAILY DOSE 50 MG
     Route: 048
     Dates: start: 20100927, end: 20101007
  5. NIFEDIPINE [Concomitant]
     Indication: HYPERTENSION
     Dosage: DAILY DOSE 40 MG
     Route: 048
     Dates: start: 20080101

REACTIONS (2)
  - SKIN ULCER [None]
  - ERYTHEMA [None]
